FAERS Safety Report 10455499 (Version 1)
Quarter: 2014Q3

REPORT INFORMATION
  Report Type: Spontaneous
  Country: US (occurrence: None)
  Receive Date: 20140915
  Receipt Date: 20140915
  Transmission Date: 20150326
  Serious: Yes (Hospitalization)
  Sender: FDA-Public Use
  Company Number: None

PATIENT
  Age: 79 Year
  Sex: Male
  Weight: 66.23 kg

DRUGS (17)
  1. SELENIUM [Concomitant]
     Active Substance: SELENIUM
  2. MEGA COQ 10 [Concomitant]
  3. FRUIT AND VEGETABLE CAPSULE [Concomitant]
  4. FISH OIL [Concomitant]
     Active Substance: FISH OIL
  5. SAWPALMETTO [Concomitant]
  6. L-ARGININE [Concomitant]
     Active Substance: ARGININE
  7. CHANTIX [Suspect]
     Active Substance: VARENICLINE TARTRATE
     Indication: SMOKING CESSATION THERAPY
     Route: 048
     Dates: start: 20140902, end: 20140906
  8. POTASSIUM GLUCONATE [Concomitant]
     Active Substance: POTASSIUM GLUCONATE
  9. MAGNESIUM [Concomitant]
     Active Substance: MAGNESIUM
  10. REVERATROL [Concomitant]
  11. CHLORELLA VULGARIS [Concomitant]
     Active Substance: CHLORELLA VULGARIS
  12. CRAN-MAX [Concomitant]
  13. GARLIC-LECITHIN [Concomitant]
  14. CARNITINE [Concomitant]
     Active Substance: CARNITINE
  15. VITAMIN C [Concomitant]
     Active Substance: ASCORBIC ACID
  16. VITAMIN B12 [Concomitant]
     Active Substance: CYANOCOBALAMIN
  17. ENERGY BOOSTER PACKET [Concomitant]

REACTIONS (3)
  - Abnormal behaviour [None]
  - Agitation [None]
  - Confusional state [None]

NARRATIVE: CASE EVENT DATE: 20140908
